FAERS Safety Report 14787219 (Version 5)
Quarter: 2019Q3

REPORT INFORMATION
  Report Type: Spontaneous
  Country: US (occurrence: US)
  Receive Date: 20180421
  Receipt Date: 20190702
  Transmission Date: 20191004
  Serious: Yes (Hospitalization)
  Sender: FDA-Public Use
  Company Number: US-VIFOR (INTERNATIONAL) INC.-VIT-2018-03561

PATIENT
  Age: 57 Year
  Sex: Female
  Weight: 89.8 kg

DRUGS (26)
  1. XANAX [Concomitant]
     Active Substance: ALPRAZOLAM
  2. ZOLPIDEM TARTRATE. [Concomitant]
     Active Substance: ZOLPIDEM TARTRATE
  3. CARVEDILOL. [Concomitant]
     Active Substance: CARVEDILOL
  4. LEVEMIR [Concomitant]
     Active Substance: INSULIN DETEMIR
  5. VELTASSA [Suspect]
     Active Substance: PATIROMER
     Indication: HYPERKALAEMIA
     Route: 048
     Dates: start: 20170726, end: 20180408
  6. CLONIDINE HCL [Concomitant]
     Active Substance: CLONIDINE HYDROCHLORIDE
  7. HYDRALAZINE HCL [Concomitant]
     Active Substance: HYDRALAZINE HYDROCHLORIDE
  8. SENOKOT-S [Concomitant]
     Active Substance: DOCUSATE SODIUM\SENNOSIDES
  9. OXYCODONE HYDROCHLORIDE. [Concomitant]
     Active Substance: OXYCODONE HYDROCHLORIDE
  10. PANTOPRAZOLE SODIUM. [Concomitant]
     Active Substance: PANTOPRAZOLE SODIUM
  11. NOVOLOG [Concomitant]
     Active Substance: INSULIN ASPART
  12. ASPIRIN. [Concomitant]
     Active Substance: ASPIRIN
  13. MINOXIDIL. [Concomitant]
     Active Substance: MINOXIDIL
  14. ATORVASTATIN CALCIUM. [Concomitant]
     Active Substance: ATORVASTATIN CALCIUM
  15. COLACE [Concomitant]
     Active Substance: DOCUSATE SODIUM
  16. LORADAMED [Concomitant]
  17. PLAVIX [Concomitant]
     Active Substance: CLOPIDOGREL BISULFATE
  18. VELTASSA [Suspect]
     Active Substance: PATIROMER
     Indication: DEVICE DEPENDENCE
     Route: 048
     Dates: start: 20180412
  19. AMLODIPINE BESYLATE. [Concomitant]
     Active Substance: AMLODIPINE BESYLATE
  20. FUROSEMIDE. [Concomitant]
     Active Substance: FUROSEMIDE
  21. GABAPENTIN. [Concomitant]
     Active Substance: GABAPENTIN
  22. LEVOTHYROXINE SODIUM. [Concomitant]
     Active Substance: LEVOTHYROXINE SODIUM
  23. NORCO [Concomitant]
     Active Substance: ACETAMINOPHEN\HYDROCODONE BITARTRATE
  24. NYSTATIN. [Concomitant]
     Active Substance: NYSTATIN
  25. ZOFRAN [Concomitant]
     Active Substance: ONDANSETRON HYDROCHLORIDE
  26. CYMBALTA [Concomitant]
     Active Substance: DULOXETINE HYDROCHLORIDE

REACTIONS (5)
  - Off label use [Unknown]
  - Cholecystitis acute [Recovered/Resolved]
  - Hospitalisation [Unknown]
  - Unresponsive to stimuli [Unknown]
  - Chest pain [Unknown]

NARRATIVE: CASE EVENT DATE: 20180408
